FAERS Safety Report 8929763 (Version 1)
Quarter: 2012Q4

REPORT INFORMATION
  Report Type: 
  Country: DE (occurrence: DE)
  Receive Date: 20121128
  Receipt Date: 20121128
  Transmission Date: 20130627
  Serious: Yes (Other)
  Sender: FDA-Public Use
  Company Number: GXKR2012DE003617

PATIENT
  Age: 59 Year
  Sex: Female

DRUGS (6)
  1. OXCARBAZEPINE [Suspect]
     Dosage: 900 mg/day
     Route: 048
     Dates: start: 20120526, end: 20120621
  2. HYDROCHLOROTHIAZIDE [Suspect]
     Dosage: 25 mg/day
     Route: 048
     Dates: end: 20120621
  3. MIRTAZAPINE [Suspect]
     Dosage: 15 mg/day
     Route: 048
  4. RAMIPRIL [Suspect]
     Dosage: 5 mg/day
     Route: 048
  5. CARVEDILOL [Concomitant]
     Dosage: 50 mg/day
     Route: 048
  6. TEMGESIC [Concomitant]
     Dosage: 0.2 mg/day
     Route: 048

REACTIONS (2)
  - Hyponatraemia [Recovered/Resolved]
  - Dizziness [Unknown]
